FAERS Safety Report 20109396 (Version 1)
Quarter: 2021Q4

REPORT INFORMATION
  Report Type: Spontaneous
  Country: US (occurrence: US)
  Receive Date: 20211124
  Receipt Date: 20211124
  Transmission Date: 20220303
  Serious: No
  Sender: FDA-Public Use
  Company Number: US-TAKEDA-2021TUS072759

PATIENT
  Sex: Female
  Weight: 74 kg

DRUGS (2)
  1. FOSRENOL [Suspect]
     Active Substance: LANTHANUM CARBONATE
     Indication: End stage renal disease
     Dosage: 1000 MILLIGRAM, TID
     Route: 065
  2. FOSRENOL [Suspect]
     Active Substance: LANTHANUM CARBONATE
     Dosage: 2000 MILLIGRAM, TID
     Route: 065

REACTIONS (1)
  - Blood phosphorus increased [Unknown]
